FAERS Safety Report 24151643 (Version 1)
Quarter: 2024Q3

REPORT INFORMATION
  Report Type: Spontaneous
  Country: US (occurrence: US)
  Receive Date: 20240730
  Receipt Date: 20240730
  Transmission Date: 20241016
  Serious: No
  Sender: PERRIGO
  Company Number: US-PERRIGO-24US001742

PATIENT
  Age: 74 Year
  Sex: Female
  Weight: 79.365 kg

DRUGS (10)
  1. LORATADINE [Suspect]
     Active Substance: LORATADINE
     Indication: Seasonal allergy
     Dosage: 10 MG, SINGLE
     Route: 048
     Dates: start: 20240215, end: 20240215
  2. LORATADINE [Suspect]
     Active Substance: LORATADINE
     Indication: Perennial allergy
     Dosage: 10 MG, QD
     Route: 048
     Dates: start: 20240310, end: 20240312
  3. VITAMINS NOS [Concomitant]
     Active Substance: VITAMINS
     Indication: Supplementation therapy
     Dosage: UNKNOWN, DAILY
     Route: 065
  4. PROBIOTICS NOS [Concomitant]
     Active Substance: PROBIOTICS NOS
     Indication: Routine health maintenance
     Dosage: UNKNOWN, DAILY
     Route: 065
  5. CURCUMIN [Concomitant]
     Active Substance: CURCUMIN
     Indication: Routine health maintenance
     Dosage: UNKNOWN, DAILY
     Route: 065
  6. ADVIL [Concomitant]
     Active Substance: IBUPROFEN\IBUPROFEN SODIUM
     Indication: Headache
     Dosage: UNKNOWN, PRN
     Route: 065
  7. ADVIL [Concomitant]
     Active Substance: IBUPROFEN\IBUPROFEN SODIUM
     Indication: Chest discomfort
  8. ADVIL [Concomitant]
     Active Substance: IBUPROFEN\IBUPROFEN SODIUM
     Indication: Lacrimation increased
  9. ADVIL [Concomitant]
     Active Substance: IBUPROFEN\IBUPROFEN SODIUM
     Indication: Dyspnoea
  10. ADVIL [Concomitant]
     Active Substance: IBUPROFEN\IBUPROFEN SODIUM
     Indication: Hyperhidrosis

REACTIONS (8)
  - Chest discomfort [Not Recovered/Not Resolved]
  - Lacrimation increased [Recovered/Resolved]
  - Dyspnoea [Not Recovered/Not Resolved]
  - Hyperhidrosis [Recovered/Resolved]
  - Headache [Recovered/Resolved]
  - Condition aggravated [Recovered/Resolved]
  - Fatigue [Recovered/Resolved]
  - Expired product administered [Unknown]

NARRATIVE: CASE EVENT DATE: 20240215
